FAERS Safety Report 8956241 (Version 3)
Quarter: 2013Q3

REPORT INFORMATION
  Report Type: Report from Study
  Country: US (occurrence: US)
  Receive Date: 20121210
  Receipt Date: 20130905
  Transmission Date: 20140515
  Serious: Yes (Death)
  Sender: FDA-Public Use
  Company Number: US-ROCHE-1166173

PATIENT
  Sex: Female
  Weight: 95.16 kg

DRUGS (7)
  1. PERJETA [Suspect]
     Indication: BREAST CANCER
     Route: 065
     Dates: start: 20120829
  2. HERCEPTIN [Suspect]
     Indication: BREAST CANCER
     Route: 065
  3. TAXOTERE [Suspect]
     Indication: BREAST CANCER
     Dosage: ALSO REPORTED AS UNIT DOSE: 155MG
     Route: 065
  4. TYLENOL [Concomitant]
     Route: 065
  5. BENADRYL (UNITED STATES) [Concomitant]
     Route: 065
  6. NEULASTA [Concomitant]
     Route: 065
  7. DECADRON [Concomitant]
     Route: 065

REACTIONS (1)
  - Breast cancer metastatic [Fatal]
